FAERS Safety Report 6387424-0 (Version None)
Quarter: 2009Q3

REPORT INFORMATION
  Report Type: 
  Country: None (occurrence: None)
  Receive Date: 20090930
  Receipt Date: 20090917
  Transmission Date: 20100115
  Serious: Yes (Hospitalization, Other)
  Sender: FDA-Public Use
  Company Number: 231017J09USA

PATIENT
  Age: 69 Year
  Sex: Female

DRUGS (6)
  1. REBIF [Suspect]
     Indication: MULTIPLE SCLEROSIS
     Dosage: 44 MCG, 3 IN 1 WEEKS, SUBCUTANEOUS
     Route: 058
     Dates: start: 20050208
  2. HUMALOG [Concomitant]
  3. METFORMIN HCL [Concomitant]
  4. PLAVIX [Concomitant]
  5. NEURONTIN [Concomitant]
  6. LASIX [Concomitant]

REACTIONS (6)
  - BLOOD COUNT ABNORMAL [None]
  - CHOLELITHIASIS [None]
  - GALLBLADDER DISORDER [None]
  - PALLOR [None]
  - TOOTH FRACTURE [None]
  - VITAMIN B COMPLEX DEFICIENCY [None]
